FAERS Safety Report 21331263 (Version 1)
Quarter: 2022Q3

REPORT INFORMATION
  Report Type: Spontaneous
  Country: IT (occurrence: IT)
  Receive Date: 20220914
  Receipt Date: 20220914
  Transmission Date: 20221026
  Serious: Yes (Other)
  Sender: FDA-Public Use
  Company Number: IT-SUN PHARMACEUTICAL INDUSTRIES LTD-2022RR-354056

PATIENT
  Age: 44 Year
  Sex: Female

DRUGS (1)
  1. SERTRALINE [Suspect]
     Active Substance: SERTRALINE HYDROCHLORIDE
     Indication: Product used for unknown indication
     Dosage: TAKEN 50 TABLETS OF 50 MILLIGRAMS
     Route: 048

REACTIONS (3)
  - Drug abuse [Unknown]
  - Suicide attempt [Unknown]
  - Sopor [Unknown]

NARRATIVE: CASE EVENT DATE: 20220804
